FAERS Safety Report 25409065 (Version 2)
Quarter: 2025Q3

REPORT INFORMATION
  Report Type: Spontaneous
  Country: US (occurrence: US)
  Receive Date: 20250607
  Receipt Date: 20250810
  Transmission Date: 20251020
  Serious: No
  Sender: ALEXION PHARMACEUTICALS
  Company Number: US-AstraZeneca-CH-00740881AP

PATIENT
  Age: 30 Year
  Sex: Female

DRUGS (1)
  1. AIRSUPRA [Suspect]
     Active Substance: ALBUTEROL SULFATE\BUDESONIDE

REACTIONS (3)
  - Device delivery system issue [Not Recovered/Not Resolved]
  - Incorrect dose administered by device [Unknown]
  - Device use error [Unknown]

NARRATIVE: CASE EVENT DATE: 20240901
